FAERS Safety Report 10196999 (Version 2)
Quarter: 2014Q2

REPORT INFORMATION
  Report Type: Spontaneous
  Country: US (occurrence: US)
  Receive Date: 20140527
  Receipt Date: 20140602
  Transmission Date: 20141212
  Serious: Yes (Death, Hospitalization)
  Sender: FDA-Public Use
  Company Number: US-B.I. PHARMACEUTICALS,INC./RIDGEFIELD-2014-BI-22883BP

PATIENT
  Age: 64 Year
  Sex: Female

DRUGS (12)
  1. PRADAXA [Suspect]
     Indication: ATRIAL FIBRILLATION
     Dosage: 300 MG
     Route: 048
     Dates: start: 20140407, end: 201405
  2. LOVAZA [Concomitant]
     Route: 065
  3. METFORMIN [Concomitant]
     Route: 065
  4. PREMARIN [Concomitant]
     Route: 065
  5. SOMA [Concomitant]
     Route: 065
  6. PRIMADONE [Concomitant]
     Route: 065
  7. COREG [Concomitant]
     Route: 065
  8. PROTONIX [Concomitant]
     Route: 065
  9. VICODIN [Concomitant]
     Route: 065
  10. ALLOPURINOL [Concomitant]
     Route: 065
  11. AMBIEN [Concomitant]
     Route: 065
  12. LIPTOR [Concomitant]
     Route: 065

REACTIONS (6)
  - Circulatory collapse [Fatal]
  - Renal failure acute [Fatal]
  - Respiratory failure [Fatal]
  - Hypertension [Unknown]
  - Hypoglycaemia [Unknown]
  - Hypotension [Unknown]
